FAERS Safety Report 8952602 (Version 2)
Quarter: 2013Q1

REPORT INFORMATION
  Report Type: Spontaneous
  Country: US (occurrence: US)
  Receive Date: 20121205
  Receipt Date: 20130305
  Transmission Date: 20140127
  Serious: No
  Sender: FDA-Public Use
  Company Number: US-VERTEX PHARMACEUTICALS INC.-2012-025548

PATIENT
  Age: 61 None
  Sex: Male
  Weight: 91 kg

DRUGS (3)
  1. INCIVEK [Suspect]
     Indication: HEPATITIS C
     Dosage: 750 MG, TID
     Route: 048
     Dates: start: 20121012, end: 20121231
  2. PEGASYS [Suspect]
     Indication: HEPATITIS C
     Dosage: 180 ?G, QW
     Route: 058
     Dates: start: 20121012, end: 20121231
  3. RIBAVIRIN [Suspect]
     Indication: HEPATITIS C
     Dosage: 600 MG, BID
     Route: 048
     Dates: start: 20121012, end: 20121231

REACTIONS (6)
  - Chest pain [Unknown]
  - Pain in extremity [Unknown]
  - Insomnia [Unknown]
  - Rash macular [Not Recovered/Not Resolved]
  - Urticaria [Unknown]
  - Pruritus [Not Recovered/Not Resolved]
